FAERS Safety Report 12465738 (Version 15)
Quarter: 2017Q1

REPORT INFORMATION
  Report Type: Spontaneous
  Country: US (occurrence: US)
  Receive Date: 20160614
  Receipt Date: 20170308
  Transmission Date: 20170428
  Serious: Yes (Life-Threatening, Hospitalization)
  Sender: FDA-Public Use
  Company Number: US-TAKEDA-2016MPI005466

PATIENT
  Age: 77 Year
  Sex: Female
  Weight: 77 kg

DRUGS (82)
  1. MELPHALAN [Suspect]
     Active Substance: MELPHALAN
     Indication: PLASMA CELL MYELOMA
     Dosage: 16 MG, UNK
     Route: 048
     Dates: start: 20150528
  2. PREDNISONE. [Concomitant]
     Active Substance: PREDNISONE
     Dosage: UNK, TID
     Route: 047
     Dates: start: 20150506, end: 20150530
  3. ZYMAXID [Concomitant]
     Active Substance: GATIFLOXACIN
     Dosage: UNK, TID
     Route: 047
     Dates: start: 20150426, end: 20150508
  4. DULCOLAX (BISACODYL) [Concomitant]
     Active Substance: BISACODYL
     Dosage: UNK, QD
     Route: 048
     Dates: start: 20160130
  5. DOCUSATE SODIUM. [Concomitant]
     Active Substance: DOCUSATE SODIUM
     Dosage: 100 MG, QD
     Route: 048
  6. FUROSEMIDE. [Concomitant]
     Active Substance: FUROSEMIDE
     Dosage: 20 MG, BID
     Route: 042
  7. LABETALOL [Concomitant]
     Active Substance: LABETALOL\LABETALOL HYDROCHLORIDE
     Dosage: 20 MG, UNK
     Route: 042
     Dates: start: 20160603, end: 20160604
  8. GABAPENTIN. [Concomitant]
     Active Substance: GABAPENTIN
     Indication: NEURALGIA
     Dosage: 300 MG, TID
     Route: 048
  9. HYDRALAZINE [Concomitant]
     Active Substance: HYDRALAZINE HYDROCHLORIDE
     Indication: HYPERTENSION
     Dosage: 4 MG, UNK
     Route: 048
     Dates: start: 20160603, end: 20160604
  10. GLIPIZIDE. [Concomitant]
     Active Substance: GLIPIZIDE
     Indication: DIABETES MELLITUS
     Dosage: 5 MG, UNK
     Route: 048
  11. GATIFLOXACIN. [Concomitant]
     Active Substance: GATIFLOXACIN
     Indication: CATARACT OPERATION
     Dosage: UNK, TID
     Route: 047
     Dates: start: 20150428, end: 20150508
  12. GATIFLOXACIN. [Concomitant]
     Active Substance: GATIFLOXACIN
     Dosage: UNK, TID
     Route: 047
     Dates: start: 20150428, end: 20150508
  13. NEVANAC [Concomitant]
     Active Substance: NEPAFENAC
     Dosage: UNK, TID
     Route: 047
     Dates: start: 20150506, end: 20150527
  14. ZYMAXID [Concomitant]
     Active Substance: GATIFLOXACIN
     Dosage: UNK, TID
     Route: 047
     Dates: start: 20150506, end: 20150512
  15. PERCOCET [Concomitant]
     Active Substance: ACETAMINOPHEN\OXYCODONE HYDROCHLORIDE
     Indication: PAIN IN EXTREMITY
     Dosage: 25 MG, UNK
     Route: 048
     Dates: start: 20150727, end: 20150930
  16. DULCOLAX (BISACODYL) [Concomitant]
     Active Substance: BISACODYL
     Indication: CONSTIPATION
     Dosage: UNK, QD
     Route: 048
     Dates: start: 20150810, end: 20160129
  17. CENTRUM SILVER                     /02363801/ [Concomitant]
     Active Substance: MINERALS\VITAMINS
     Dosage: UNK UNK, QD
     Route: 048
  18. LATANOPROST. [Concomitant]
     Active Substance: LATANOPROST
     Indication: PROPHYLAXIS
     Dosage: UNK, QD
     Route: 047
     Dates: start: 20160601
  19. PROCRIT [Concomitant]
     Active Substance: ERYTHROPOIETIN
     Dosage: UNK
     Route: 065
  20. INSULIN ASPART [Concomitant]
     Active Substance: INSULIN ASPART
     Dosage: UNK, QID
     Route: 058
  21. SODIUM CHLORIDE. [Concomitant]
     Active Substance: SODIUM CHLORIDE
     Dosage: 3 ML, UNK
     Route: 065
  22. ALPHAGAN P [Concomitant]
     Active Substance: BRIMONIDINE TARTRATE
     Indication: PROPHYLAXIS
     Dosage: UNK
     Route: 047
     Dates: start: 20160601
  23. ASPIRIN                            /00002701/ [Concomitant]
     Active Substance: ASPIRIN
     Indication: PROPHYLAXIS
     Dosage: 325 MG, QD
     Route: 048
     Dates: start: 2010
  24. ASPIRIN                            /00002701/ [Concomitant]
     Active Substance: ASPIRIN
     Indication: CARDIAC DISORDER
     Dosage: 81 MG, QD
     Route: 048
  25. ASPIRIN                            /00002701/ [Concomitant]
     Active Substance: ASPIRIN
     Dosage: 81 MG, QD
     Route: 048
  26. PREDNISONE. [Concomitant]
     Active Substance: PREDNISONE
     Dosage: UNK, TID
     Route: 047
     Dates: start: 20150429, end: 20150512
  27. ERYTHROMYCIN. [Concomitant]
     Active Substance: ERYTHROMYCIN
     Dosage: UNK, TID
     Route: 047
     Dates: start: 20150406, end: 20150512
  28. ERYTHROMYCIN. [Concomitant]
     Active Substance: ERYTHROMYCIN
     Dosage: UNK, TID
     Route: 047
     Dates: start: 20150406, end: 20150512
  29. ZOMETA [Concomitant]
     Active Substance: ZOLEDRONIC ACID
     Indication: PROPHYLAXIS
     Dosage: 4 MG, MONTHLY
     Route: 042
     Dates: start: 20150730
  30. CALCIUM + VIT D [Concomitant]
     Active Substance: CALCIUM\VITAMIN D
     Dosage: UNK, QD
     Route: 048
  31. NIACIN. [Concomitant]
     Active Substance: NIACIN
     Indication: VITAMIN SUPPLEMENTATION
     Dosage: UNK UNK, QD
     Route: 048
     Dates: start: 2008, end: 20150701
  32. HYDRALAZINE [Concomitant]
     Active Substance: HYDRALAZINE HYDROCHLORIDE
     Indication: HYPERTENSION
     Dosage: 10 MG, QID
     Route: 042
     Dates: start: 20160629, end: 20160705
  33. INSULIN [Concomitant]
     Active Substance: INSULIN NOS
     Dosage: 1 MG, UNK
     Route: 030
     Dates: start: 20160603, end: 20160604
  34. VELCADE [Suspect]
     Active Substance: BORTEZOMIB
     Indication: PLASMA CELL MYELOMA
     Dosage: 2.4 MG, 1/WEEK
     Route: 042
     Dates: start: 20150416, end: 20150427
  35. DARATUMUMAB [Suspect]
     Active Substance: DARATUMUMAB
     Indication: PLASMA CELL MYELOMA
     Dosage: 1321 MG, UNK
     Route: 042
     Dates: start: 20150414, end: 20160526
  36. METOPROLOL. [Concomitant]
     Active Substance: METOPROLOL
     Indication: HYPERTENSION
     Dosage: 12.5 MG, BID
     Route: 048
     Dates: start: 201407
  37. ERYTHROMYCIN. [Concomitant]
     Active Substance: ERYTHROMYCIN
     Dosage: UNK, TID
     Route: 047
     Dates: start: 20150429, end: 20150509
  38. NEVANAC [Concomitant]
     Active Substance: NEPAFENAC
     Indication: CATARACT OPERATION
     Dosage: UNK, TID
     Route: 047
     Dates: start: 20150426, end: 20150508
  39. ZYMAXID [Concomitant]
     Active Substance: GATIFLOXACIN
     Dosage: UNK, TID
     Route: 047
     Dates: start: 20150506, end: 20150512
  40. HYDROCODONE [Concomitant]
     Active Substance: HYDROCODONE
     Dosage: 2 MG, UNK
     Route: 048
     Dates: start: 20160130
  41. HYDROCODONE [Concomitant]
     Active Substance: HYDROCODONE
     Dosage: 2 MG, UNK
     Route: 048
     Dates: start: 20160130
  42. GABAPENTIN. [Concomitant]
     Active Substance: GABAPENTIN
     Indication: NEURALGIA
  43. HEPARIN [Concomitant]
     Active Substance: HEPARIN SODIUM
     Dosage: UNK
     Route: 058
  44. METHYLPREDNISOLONE SODIUM SUCCINATE. [Concomitant]
     Active Substance: METHYLPREDNISOLONE SODIUM SUCCINATE
     Dosage: 40 MG, QD
     Route: 042
  45. VITAMINA B12 [Concomitant]
     Indication: NUTRITIONAL SUPPLEMENTATION
     Dosage: UNK, MONTHLY
     Route: 060
     Dates: start: 20160119
  46. HYDRALAZINE [Concomitant]
     Active Substance: HYDRALAZINE HYDROCHLORIDE
     Dosage: 25 MG, TID
     Route: 048
     Dates: start: 20160706
  47. VELCADE [Suspect]
     Active Substance: BORTEZOMIB
     Dosage: 2.4 MG, 1/WEEK
     Route: 042
     Dates: start: 20150820, end: 20150820
  48. LISINOPRIL. [Concomitant]
     Active Substance: LISINOPRIL
     Indication: HYPERTENSION
     Dosage: 25 MG, BID
     Route: 048
     Dates: start: 2014, end: 20160629
  49. ALEVE PM [Concomitant]
     Active Substance: DIPHENHYDRAMINE HYDROCHLORIDE\NAPROXEN SODIUM
     Indication: INSOMNIA
     Dosage: UNK
     Route: 048
     Dates: start: 2012
  50. GATIFLOXACIN. [Concomitant]
     Active Substance: GATIFLOXACIN
     Dosage: UNK, TID
     Route: 047
     Dates: start: 20150506, end: 20150512
  51. PREDNISONE. [Concomitant]
     Active Substance: PREDNISONE
     Dosage: UNK, TID
     Route: 047
     Dates: start: 20150506, end: 20150530
  52. ERYTHROMYCIN. [Concomitant]
     Active Substance: ERYTHROMYCIN
     Indication: CATARACT OPERATION
     Dosage: UNK, TID
     Route: 047
     Dates: start: 20150429, end: 20150509
  53. NEVANAC [Concomitant]
     Active Substance: NEPAFENAC
     Dosage: UNK, TID
     Route: 047
     Dates: start: 20150426, end: 20150508
  54. GABAPENTIN. [Concomitant]
     Active Substance: GABAPENTIN
     Indication: BACK PAIN
     Dosage: UNK, QD
     Route: 048
     Dates: start: 20160315
  55. ALPHAGAN P [Concomitant]
     Active Substance: BRIMONIDINE TARTRATE
     Indication: PROPHYLAXIS
     Dosage: UNK, BID
     Route: 047
  56. ALPHAGAN P [Concomitant]
     Active Substance: BRIMONIDINE TARTRATE
     Dosage: UNK, BID
     Route: 047
  57. DEXTROSE. [Concomitant]
     Active Substance: DEXTROSE
     Dosage: 25 ML, UNK
     Route: 065
  58. DEXTROSE. [Concomitant]
     Active Substance: DEXTROSE
     Dosage: 50 ML, UNK
     Route: 065
  59. HYDRALAZINE [Concomitant]
     Active Substance: HYDRALAZINE HYDROCHLORIDE
     Dosage: 4 MG, TID
     Route: 048
     Dates: start: 20160604, end: 20160629
  60. CARVEDILOL. [Concomitant]
     Active Substance: CARVEDILOL
     Indication: HYPERTENSION
     Dosage: 6.25 MG, BID
     Dates: start: 20160629
  61. GLIPIZIDE. [Concomitant]
     Active Substance: GLIPIZIDE
     Indication: BLOOD GLUCOSE INCREASED
     Dosage: 10 MG, QD
     Route: 048
     Dates: start: 1995, end: 20160101
  62. METFORMIN [Concomitant]
     Active Substance: METFORMIN HYDROCHLORIDE
     Indication: DIABETES MELLITUS
     Dosage: 1000 MG, BID
     Route: 048
     Dates: start: 2010, end: 20160601
  63. VITAMINA B12 [Concomitant]
     Indication: VITAMIN SUPPLEMENTATION
     Dosage: 1000 MG, QD
     Route: 048
     Dates: start: 2014, end: 20150701
  64. PREDNISONE. [Concomitant]
     Active Substance: PREDNISONE
     Indication: CATARACT OPERATION
     Dosage: UNK, TID
     Route: 047
     Dates: start: 20150429, end: 20150512
  65. NEVANAC [Concomitant]
     Active Substance: NEPAFENAC
     Dosage: UNK, TID
     Route: 047
     Dates: start: 20150506, end: 20150527
  66. HYDROCODONE [Concomitant]
     Active Substance: HYDROCODONE
     Indication: CONSTIPATION
     Dosage: 5 MG, QID
     Route: 048
     Dates: start: 20151001, end: 20151030
  67. ATORVASTATIN [Concomitant]
     Active Substance: ATORVASTATIN
     Indication: HYPERTENSION
     Dosage: 40 MG, QD
     Route: 048
     Dates: start: 20160629
  68. VELCADE [Suspect]
     Active Substance: BORTEZOMIB
     Dosage: 2.4 MG, 1/WEEK
     Route: 042
     Dates: start: 20150910
  69. PREDNISONE. [Suspect]
     Active Substance: PREDNISONE
     Indication: PLASMA CELL MYELOMA
     Dosage: 20 MG, UNK
     Route: 042
     Dates: start: 20150528, end: 20160526
  70. GLIPIZIDE. [Concomitant]
     Active Substance: GLIPIZIDE
     Dosage: 5 MG, UNK
     Route: 048
  71. GATIFLOXACIN. [Concomitant]
     Active Substance: GATIFLOXACIN
     Dosage: UNK, TID
     Route: 047
     Dates: start: 20150506, end: 20150512
  72. HYDROCODONE [Concomitant]
     Active Substance: HYDROCODONE
     Indication: BACK PAIN
     Dosage: 5 MG, QID
     Route: 048
     Dates: start: 20151001, end: 20151030
  73. OMEPRAZOLE. [Concomitant]
     Active Substance: OMEPRAZOLE
     Indication: ABDOMINAL PAIN UPPER
     Dosage: UNK, QD
     Route: 048
     Dates: start: 20151112
  74. XALATAN [Concomitant]
     Active Substance: LATANOPROST
     Dosage: UNK
     Route: 065
  75. VELCADE [Suspect]
     Active Substance: BORTEZOMIB
     Dosage: 2.5 MG, 1/WEEK
     Route: 042
     Dates: start: 20150709, end: 20150806
  76. VELCADE [Suspect]
     Active Substance: BORTEZOMIB
     Dosage: 2.4 MG, 1/WEEK
     Route: 042
     Dates: start: 20150514, end: 20150625
  77. GLIPIZIDE. [Concomitant]
     Active Substance: GLIPIZIDE
     Dosage: 10 MG, QD
     Route: 048
     Dates: start: 1995, end: 20160101
  78. ASPIRIN                            /00002701/ [Concomitant]
     Active Substance: ASPIRIN
     Dosage: 325 MG, QD
     Route: 048
     Dates: start: 2010
  79. ZYMAXID [Concomitant]
     Active Substance: GATIFLOXACIN
     Indication: CATARACT OPERATION
     Dosage: UNK, TID
     Route: 047
     Dates: start: 20150426, end: 20150508
  80. OXYBUTYNIN [Concomitant]
     Active Substance: OXYBUTYNIN
     Dosage: 5 MG, BID
     Route: 048
  81. GLUCAGON. [Concomitant]
     Active Substance: GLUCAGON
     Dosage: 1 MG, UNK
     Route: 058
  82. SODIUM CHLORIDE. [Concomitant]
     Active Substance: SODIUM CHLORIDE
     Dosage: 3 ML, Q8HR
     Route: 065

REACTIONS (5)
  - Diastolic dysfunction [Recovered/Resolved]
  - Pneumonia viral [Recovered/Resolved]
  - Drug effect incomplete [Unknown]
  - Fluid overload [Unknown]
  - Constipation [Unknown]

NARRATIVE: CASE EVENT DATE: 20160130
